FAERS Safety Report 18446155 (Version 7)
Quarter: 2021Q2

REPORT INFORMATION
  Report Type: Report from Study
  Country: US (occurrence: US)
  Receive Date: 20201030
  Receipt Date: 20210602
  Transmission Date: 20210717
  Serious: Yes (Hospitalization)
  Sender: FDA-Public Use
  Company Number: US-AGIOS-2010US02231

PATIENT

DRUGS (19)
  1. CYCLOBENZAPRINE. [Concomitant]
     Active Substance: CYCLOBENZAPRINE
     Route: 048
  2. HYDROCHLOROTHIAZIDE. [Concomitant]
     Active Substance: HYDROCHLOROTHIAZIDE
     Indication: PRODUCT USED FOR UNKNOWN INDICATION
     Dosage: 25 MILLIGRAM, AS DIRECTED
     Route: 048
  3. LOSARTAN. [Concomitant]
     Active Substance: LOSARTAN
     Dosage: 100 MILLIGRAM, QD
     Route: 048
  4. FENOFIBRATE. [Concomitant]
     Active Substance: FENOFIBRATE
     Indication: PRODUCT USED FOR UNKNOWN INDICATION
     Dosage: 160 MILLIGRAM, QD
     Route: 048
  5. VITAMIN D                          /00107901/ [Concomitant]
     Active Substance: ERGOCALCIFEROL
     Indication: PRODUCT USED FOR UNKNOWN INDICATION
     Route: 065
  6. TIBSOVO [Suspect]
     Active Substance: IVOSIDENIB
     Dosage: 250MG, 2 TABLETS (500MG) DAILY
     Route: 048
     Dates: start: 20201028
  7. FLEXERIL [Concomitant]
     Active Substance: CYCLOBENZAPRINE HYDROCHLORIDE
     Indication: PRODUCT USED FOR UNKNOWN INDICATION
     Route: 065
  8. GABAPENTIN. [Concomitant]
     Active Substance: GABAPENTIN
     Indication: PRODUCT USED FOR UNKNOWN INDICATION
     Dosage: 300 MILLIGRAM, TID
     Route: 048
  9. IMITREX [Concomitant]
     Active Substance: SUMATRIPTAN SUCCINATE
     Dosage: AS NEEDED
     Route: 048
  10. CHOLECALCIFEROL [Concomitant]
     Active Substance: CHOLECALCIFEROL
     Dosage: 2000 UNITS, QD
     Route: 048
  11. SERTRALINE [Concomitant]
     Active Substance: SERTRALINE HYDROCHLORIDE
     Indication: PRODUCT USED FOR UNKNOWN INDICATION
     Route: 065
  12. POTASSIUM GLUCONATE [Concomitant]
     Active Substance: POTASSIUM GLUCONATE
     Dosage: 2.5 MILLIEQUIVALENT, QD
     Route: 048
  13. AMLODIPINE [Concomitant]
     Active Substance: AMLODIPINE BESYLATE
     Dosage: 2.5 MILLIGRAM, QD
     Route: 048
  14. METFORMIN [Concomitant]
     Active Substance: METFORMIN HYDROCHLORIDE
     Indication: PRODUCT USED FOR UNKNOWN INDICATION
     Dosage: 500 MILLIGRAM, BID
     Route: 048
  15. CAPECITABINE. [Concomitant]
     Active Substance: CAPECITABINE
     Indication: PRODUCT USED FOR UNKNOWN INDICATION
     Route: 065
  16. TIBSOVO [Suspect]
     Active Substance: IVOSIDENIB
     Indication: CHOLANGIOCARCINOMA
     Dosage: 250MG, 2 TABLETS (500MG) DAILY
     Route: 048
     Dates: start: 20200917
  17. TIBSOVO [Suspect]
     Active Substance: IVOSIDENIB
     Dosage: 250MG, 2 TABLETS (500MG) DAILY
     Route: 048
  18. PREDNISONE. [Concomitant]
     Active Substance: PREDNISONE
     Dosage: UNK
     Route: 048
  19. SULFASALAZINE. [Concomitant]
     Active Substance: SULFASALAZINE
     Indication: PRODUCT USED FOR UNKNOWN INDICATION
     Dosage: 1000 MILLIGRAM, BID
     Route: 048

REACTIONS (13)
  - Anosmia [Recovered/Resolved]
  - Dizziness [Unknown]
  - Computerised tomogram abnormal [Unknown]
  - Rash [Not Recovered/Not Resolved]
  - Fatigue [Unknown]
  - Nausea [Unknown]
  - Dehydration [Unknown]
  - Ageusia [Recovered/Resolved]
  - Fatigue [Unknown]
  - Somnolence [Unknown]
  - COVID-19 [Recovered/Resolved]
  - Dizziness [Unknown]
  - Off label use [Not Recovered/Not Resolved]

NARRATIVE: CASE EVENT DATE: 20200917
